FAERS Safety Report 4603405-9 (Version None)
Quarter: 2005Q1

REPORT INFORMATION
  Report Type: 
  Country: None (occurrence: None)
  Receive Date: 20050309
  Receipt Date: 20050228
  Transmission Date: 20050727
  Serious: Yes (Hospitalization, Other)
  Sender: FDA-Public Use
  Company Number: US-MERCK-0503USA00133

PATIENT
  Sex: Female

DRUGS (6)
  1. VIOXX [Suspect]
     Route: 048
     Dates: start: 20000101
  2. DETROL [Concomitant]
     Route: 048
  3. SINEMET [Concomitant]
     Route: 048
  4. TEMAZEPAM [Concomitant]
     Route: 065
  5. ALPHAGAN [Concomitant]
     Route: 047
  6. NYSTATIN [Concomitant]
     Route: 048

REACTIONS (20)
  - ACTINIC KERATOSIS [None]
  - ANXIETY [None]
  - ARTHRALGIA [None]
  - ASTHENIA [None]
  - CEREBROVASCULAR ACCIDENT [None]
  - CONTUSION [None]
  - COUGH [None]
  - FALL [None]
  - FUNGAL INFECTION [None]
  - GASTRIC DISORDER [None]
  - GASTROSTOMY CLOSURE [None]
  - GLAUCOMA [None]
  - OEDEMA PERIPHERAL [None]
  - ORTHOSTATIC HYPOTENSION [None]
  - PAIN IN EXTREMITY [None]
  - PARKINSON'S DISEASE [None]
  - PNEUMONIA KLEBSIELLA [None]
  - PSORIASIS [None]
  - ROTATOR CUFF SYNDROME [None]
  - SEASONAL ALLERGY [None]
